APPROVED DRUG PRODUCT: DIGOXIN
Active Ingredient: DIGOXIN
Strength: 0.25MG
Dosage Form/Route: TABLET;ORAL
Application: A078556 | Product #002
Applicant: IMPAX LABORATORIES INC
Approved: Jul 20, 2009 | RLD: No | RS: No | Type: DISCN